FAERS Safety Report 18957537 (Version 1)
Quarter: 2021Q1

REPORT INFORMATION
  Report Type: Spontaneous
  Country: US (occurrence: US)
  Receive Date: 20210302
  Receipt Date: 20210302
  Transmission Date: 20210420
  Serious: Yes (Other)
  Sender: FDA-Public Use
  Company Number: US-ALLERGAN-2034778US

PATIENT
  Age: 60 Year
  Sex: Female

DRUGS (5)
  1. NORCO [Suspect]
     Active Substance: ACETAMINOPHEN\HYDROCODONE BITARTRATE
     Indication: PAIN
     Route: 065
  2. HYDROCODONE [Suspect]
     Active Substance: HYDROCODONE
     Indication: PAIN
  3. OXYCODONE [Suspect]
     Active Substance: OXYCODONE
     Indication: PAIN
  4. PERCOCET [Suspect]
     Active Substance: ACETAMINOPHEN\OXYCODONE HYDROCHLORIDE
     Indication: PAIN
  5. VICODIN [Suspect]
     Active Substance: ACETAMINOPHEN\HYDROCODONE BITARTRATE
     Indication: PAIN

REACTIONS (8)
  - Drug dependence [Unknown]
  - Nausea [Unknown]
  - Gastric mucosal lesion [Not Recovered/Not Resolved]
  - Depression [Unknown]
  - Mental impairment [Unknown]
  - Adverse event [Unknown]
  - Impaired work ability [Unknown]
  - Decreased interest [Unknown]
